FAERS Safety Report 9955782 (Version 1)
Quarter: 2014Q1

REPORT INFORMATION
  Report Type: Report from Study
  Country: US (occurrence: US)
  Receive Date: 20140304
  Receipt Date: 20140304
  Transmission Date: 20141002
  Serious: No
  Sender: FDA-Public Use
  Company Number: US-ABBVIE-13P-163-1090018-00

PATIENT
  Age: 55 Year
  Sex: Female

DRUGS (19)
  1. HUMIRA [Suspect]
     Dates: start: 20130412
  2. IBUPROFEN [Concomitant]
     Indication: RHEUMATOID ARTHRITIS
     Dosage: 200-800MG THREE TIMES DAILY
  3. MOBIC [Concomitant]
     Indication: RHEUMATOID ARTHRITIS
  4. LAMICTAL [Concomitant]
     Indication: MOOD SWINGS
  5. NEURONTIN [Concomitant]
     Indication: TRIGEMINAL NEURALGIA
  6. ZOLOFT [Concomitant]
     Indication: DEPRESSION
  7. WELLBUTRIN [Concomitant]
     Indication: DEPRESSION
  8. METOPROLOL [Concomitant]
     Indication: HYPERTENSION
  9. METOPROLOL [Concomitant]
     Indication: HEART RATE INCREASED
  10. BENADRYL [Concomitant]
     Indication: HYPERSENSITIVITY
  11. LEFLUNOMIDE [Concomitant]
     Indication: RHEUMATOID ARTHRITIS
  12. ZANTAC [Concomitant]
     Indication: GASTROOESOPHAGEAL REFLUX DISEASE
  13. POTASSIUM [Concomitant]
     Indication: IRRITABLE BOWEL SYNDROME
  14. POTASSIUM [Concomitant]
     Indication: COLITIS
  15. POTASSIUM [Concomitant]
     Indication: DRUG THERAPY
  16. TRIAMTERENE AND HYDROCHLOROTHIAZIDE [Concomitant]
     Indication: SWELLING
     Dosage: 75/50MG DAILY
  17. MAGNESIUM [Concomitant]
     Indication: PRODUCT USED FOR UNKNOWN INDICATION
  18. ESTER-C PLUS [Concomitant]
     Indication: PRODUCT USED FOR UNKNOWN INDICATION
  19. VITAMIN D3 [Concomitant]
     Indication: PRODUCT USED FOR UNKNOWN INDICATION

REACTIONS (4)
  - Injection site bruising [Not Recovered/Not Resolved]
  - Joint swelling [Recovered/Resolved]
  - Injection site bruising [Recovered/Resolved]
  - Joint swelling [Recovered/Resolved]
